FAERS Safety Report 10195365 (Version 6)
Quarter: 2015Q2

REPORT INFORMATION
  Report Type: Report from Study
  Country: US (occurrence: US)
  Receive Date: 20140526
  Receipt Date: 20150401
  Transmission Date: 20150821
  Serious: Yes (Other)
  Sender: FDA-Public Use
  Company Number: PHEH2013US016154

PATIENT
  Age: 32 Year
  Sex: Female
  Weight: 71 kg

DRUGS (23)
  1. KEPPRA [Concomitant]
     Active Substance: LEVETIRACETAM
     Indication: SEIZURE
     Route: 048
  2. RISPERDAL [Concomitant]
     Active Substance: RISPERIDONE
     Indication: PRODUCT USED FOR UNKNOWN INDICATION
     Route: 065
  3. AFINITOR [Suspect]
     Active Substance: EVEROLIMUS
     Dosage: 5 MG
     Route: 048
     Dates: start: 20140516
  4. ADVAIR HFA [Concomitant]
     Active Substance: FLUTICASONE PROPIONATE\SALMETEROL XINAFOATE
     Indication: PRODUCT USED FOR UNKNOWN INDICATION
     Dosage: UNK
     Route: 055
     Dates: end: 201401
  5. ALBUTEROL. [Concomitant]
     Active Substance: ALBUTEROL
     Indication: PRODUCT USED FOR UNKNOWN INDICATION
     Route: 065
  6. NEXIUM [Concomitant]
     Active Substance: ESOMEPRAZOLE MAGNESIUM
     Indication: PRODUCT USED FOR UNKNOWN INDICATION
     Dosage: UNK, PRN
     Route: 065
  7. AFINITOR [Suspect]
     Active Substance: EVEROLIMUS
     Indication: ANGIOMYOLIPOMA
     Dosage: 5 MG, QD
     Route: 048
     Dates: start: 20130706, end: 20140506
  8. ATENOLOL. [Concomitant]
     Active Substance: ATENOLOL
     Indication: HYPERTENSION
     Route: 048
  9. PROVENTIL [Concomitant]
     Active Substance: ALBUTEROL
     Indication: PRODUCT USED FOR UNKNOWN INDICATION
     Dosage: UNK, PRN
     Route: 065
  10. TRICOR [Concomitant]
     Active Substance: FENOFIBRATE
     Indication: PRODUCT USED FOR UNKNOWN INDICATION
     Route: 065
  11. LATUDA [Concomitant]
     Active Substance: LURASIDONE HYDROCHLORIDE
     Indication: PRODUCT USED FOR UNKNOWN INDICATION
     Route: 065
  12. ORAP [Concomitant]
     Active Substance: PIMOZIDE
     Indication: PRODUCT USED FOR UNKNOWN INDICATION
     Route: 065
  13. DEPAKOTE [Concomitant]
     Active Substance: DIVALPROEX SODIUM
     Indication: PRODUCT USED FOR UNKNOWN INDICATION
     Route: 048
  14. XANAX [Concomitant]
     Active Substance: ALPRAZOLAM
     Indication: PRODUCT USED FOR UNKNOWN INDICATION
     Route: 048
  15. CALCIUM [Concomitant]
     Active Substance: CALCIUM
     Indication: PRODUCT USED FOR UNKNOWN INDICATION
     Route: 048
  16. VICODIN [Concomitant]
     Active Substance: ACETAMINOPHEN\HYDROCODONE BITARTRATE
     Indication: PRODUCT USED FOR UNKNOWN INDICATION
     Dosage: UNK, PRN
     Route: 065
  17. LISINOPRIL. [Concomitant]
     Active Substance: LISINOPRIL
     Indication: PRODUCT USED FOR UNKNOWN INDICATION
     Route: 065
  18. FANAPT [Concomitant]
     Active Substance: ILOPERIDONE
     Dosage: UNK
     Route: 065
  19. VITAMIN D [Concomitant]
     Active Substance: CHOLECALCIFEROL
     Indication: PRODUCT USED FOR UNKNOWN INDICATION
     Route: 065
  20. BENZODIAZEPINES [Concomitant]
     Active Substance: BENZODIAZEPINE
     Indication: PRODUCT USED FOR UNKNOWN INDICATION
     Route: 065
  21. KLONOPIN [Concomitant]
     Active Substance: CLONAZEPAM
     Indication: PRODUCT USED FOR UNKNOWN INDICATION
     Route: 065
  22. FANAPT [Concomitant]
     Active Substance: ILOPERIDONE
     Indication: SEIZURE
     Dosage: 12 MG, BID
     Route: 065
  23. SIMVASTATIN. [Concomitant]
     Active Substance: SIMVASTATIN
     Indication: PRODUCT USED FOR UNKNOWN INDICATION
     Route: 065

REACTIONS (22)
  - Schizophrenia [Not Recovered/Not Resolved]
  - Eye swelling [Unknown]
  - Malaise [Unknown]
  - Cough [Not Recovered/Not Resolved]
  - Lymphadenopathy [Unknown]
  - Chills [Unknown]
  - Weight abnormal [Not Recovered/Not Resolved]
  - Oropharyngeal pain [Not Recovered/Not Resolved]
  - Blood parathyroid hormone decreased [Unknown]
  - Dysgeusia [Unknown]
  - Hypersensitivity [Unknown]
  - Vomiting [Not Recovered/Not Resolved]
  - Hallucination [Not Recovered/Not Resolved]
  - Feeding disorder [Unknown]
  - Osteoporosis [Unknown]
  - Calcium ionised increased [Unknown]
  - Ear infection [Not Recovered/Not Resolved]
  - Vitamin D decreased [Unknown]
  - Intentional self-injury [Recovering/Resolving]
  - Ankle fracture [Unknown]
  - Palpitations [Unknown]
  - Pharyngeal erythema [Unknown]

NARRATIVE: CASE EVENT DATE: 201307
